FAERS Safety Report 4769121-8 (Version None)
Quarter: 2005Q3

REPORT INFORMATION
  Report Type: 
  Country: None (occurrence: None)
  Receive Date: 20050915
  Receipt Date: 20050902
  Transmission Date: 20060218
  Serious: Yes (Hospitalization)
  Sender: FDA-Public Use
  Company Number: AU-NOVOPROD-246692

PATIENT
  Sex: Female

DRUGS (2)
  1. ACTRAPID [Suspect]
     Indication: DIABETES MELLITUS
     Dates: end: 20041101
  2. MONOTARD [Concomitant]
     Indication: DIABETES MELLITUS
     Dates: end: 20041101

REACTIONS (1)
  - LEG AMPUTATION [None]
